FAERS Safety Report 9457468 (Version 3)
Quarter: 2013Q3

REPORT INFORMATION
  Report Type: Spontaneous
  Country: BE (occurrence: None)
  Receive Date: 20130812
  Receipt Date: 20130920
  Transmission Date: 20140515
  Serious: Yes (Hospitalization)
  Sender: FDA-Public Use
  Company Number: SYM-2013-07902

PATIENT
  Age: 66 Year
  Sex: Male

DRUGS (5)
  1. 5 FU [Suspect]
     Indication: COLORECTAL CANCER METASTATIC
     Route: 041
     Dates: start: 20130619, end: 20130619
  2. IRINOTECAN [Suspect]
     Indication: COLORECTAL CANCER METASTATIC
     Route: 041
     Dates: start: 20130619, end: 20130619
  3. LEUCOVORIN (FOLINIC ACID) (SOLUTION FOR INFUSION) (FOLINIC ACID) [Suspect]
     Route: 041
     Dates: start: 20130619, end: 20130619
  4. AFLIBERCEPT [Suspect]
     Route: 041
     Dates: start: 20130619, end: 20130619
  5. INNOHEP (TINZAPARIN SODIUM) (TINZAPARIN SODIUM) [Concomitant]

REACTIONS (4)
  - Chest pain [None]
  - Dyspnoea exertional [None]
  - Superior vena cava stenosis [None]
  - Thrombosis in device [None]
